FAERS Safety Report 8815154 (Version 1)
Quarter: 2012Q4

REPORT INFORMATION
  Report Type: 
  Country: US (occurrence: US)
  Receive Date: 20120928
  Receipt Date: 20120928
  Transmission Date: 20130627
  Serious: Yes (Hospitalization)
  Sender: FDA-Public Use
  Company Number: US-BAYER-2012-101022

PATIENT
  Age: 38 Year
  Sex: Female

DRUGS (10)
  1. YASMIN [Suspect]
  2. CYMBALTA [Concomitant]
     Dosage: 60 mg a day
  3. ACIPHEX [Concomitant]
     Dosage: 20 mg a day
  4. HYDROXYZINE [Concomitant]
  5. XANAX [Concomitant]
  6. TOPAMAX [Concomitant]
  7. IBUPROFEN [Concomitant]
  8. EXERT [Concomitant]
  9. HYDROCODONE [Concomitant]
  10. NORCO [Concomitant]

REACTIONS (1)
  - Pulmonary embolism [None]
